FAERS Safety Report 21312554 (Version 1)
Quarter: 2022Q3

REPORT INFORMATION
  Report Type: Spontaneous
  Country: US (occurrence: None)
  Receive Date: 20220909
  Receipt Date: 20220909
  Transmission Date: 20221027
  Serious: No
  Sender: FDA-Public Use
  Company Number: US-ARIS GLOBAL-202206-1177

PATIENT
  Sex: Female

DRUGS (23)
  1. OXERVATE [Suspect]
     Active Substance: CENEGERMIN-BKBJ
     Indication: Ophthalmic herpes zoster
     Route: 047
     Dates: start: 20220520
  2. TOBRAMYCIN [Concomitant]
     Active Substance: TOBRAMYCIN
  3. REFRESH OPTIVE [Concomitant]
     Active Substance: CARBOXYMETHYLCELLULOSE SODIUM\GLYCERIN
     Dosage: 0.5%-0.9%
  4. LATANOPROST [Concomitant]
     Active Substance: LATANOPROST
  5. COMBIGAN [Concomitant]
     Active Substance: BRIMONIDINE TARTRATE\TIMOLOL MALEATE
     Dosage: 0.2%-0.5%
  6. ASPIRIN [Concomitant]
     Active Substance: ASPIRIN
     Dosage: DELAYED RELEASE
  7. GABAPENTIN [Concomitant]
     Active Substance: GABAPENTIN
  8. FENTANYL [Concomitant]
     Active Substance: FENTANYL
     Dosage: 12 MCG/HOUR PATCH THREE DAYS 72
  9. HYDROCORTISONE [Concomitant]
     Active Substance: HYDROCORTISONE
  10. GABAPENTIN [Concomitant]
     Active Substance: GABAPENTIN
  11. FENTANYL [Concomitant]
     Active Substance: FENTANYL
     Dosage: 25 MCG/HOUR PATCH THREE DAYS 72
  12. LEVOTHYROXINE SODIUM [Concomitant]
     Active Substance: LEVOTHYROXINE SODIUM
  13. VITAMINS [Concomitant]
     Active Substance: VITAMINS
     Dosage: 19 29-1-25 MG
  14. ALBUTEROL SULFATE [Concomitant]
     Active Substance: ALBUTEROL SULFATE
  15. ASPIRIN [Concomitant]
     Active Substance: ASPIRIN
  16. BENAZEPRIL HYDROCHLORIDE [Concomitant]
     Active Substance: BENAZEPRIL HYDROCHLORIDE
  17. CLOBETASOL PROPIONATE [Concomitant]
     Active Substance: CLOBETASOL PROPIONATE
  18. IBUPROFEN [Concomitant]
     Active Substance: IBUPROFEN
  19. HORIZANT [Concomitant]
     Active Substance: GABAPENTIN ENACARBIL
     Dosage: EXTENDED RELEASE
  20. SULFADIAZINE [Concomitant]
     Active Substance: SULFADIAZINE
  21. RAMIPRIL [Concomitant]
     Active Substance: RAMIPRIL
  22. ERYTHROMYCIN [Concomitant]
     Active Substance: ERYTHROMYCIN
  23. MOXIFLOXACIN [Concomitant]
     Active Substance: MOXIFLOXACIN

REACTIONS (2)
  - Eye pain [Unknown]
  - Facial pain [Unknown]
